FAERS Safety Report 20911287 (Version 10)
Quarter: 2023Q2

REPORT INFORMATION
  Report Type: Report from Study
  Country: US (occurrence: US)
  Receive Date: 20220603
  Receipt Date: 20230503
  Transmission Date: 20230722
  Serious: Yes (Other)
  Sender: FDA-Public Use
  Company Number: US-GLAXOSMITHKLINE-US2022086900

PATIENT

DRUGS (13)
  1. NIRAPARIB [Suspect]
     Active Substance: NIRAPARIB
     Indication: Ovarian cancer
     Dosage: 200 MG, QD
     Dates: start: 20220523, end: 20220527
  2. NIRAPARIB [Suspect]
     Active Substance: NIRAPARIB
     Indication: Malignant peritoneal neoplasm
     Dosage: 100 MG, QD, PM
     Route: 048
     Dates: start: 20220606, end: 20220630
  3. NIRAPARIB [Suspect]
     Active Substance: NIRAPARIB
     Dosage: 100 MG, QD, HS WITHOUT FOOD
     Route: 048
     Dates: start: 20220710
  4. NIRAPARIB [Suspect]
     Active Substance: NIRAPARIB
     Dosage: 100 MG, QD, HS WITHOUT FOOD
     Route: 048
  5. NIRAPARIB [Suspect]
     Active Substance: NIRAPARIB
     Dosage: 100 MG, QD
     Route: 048
  6. NIRAPARIB [Suspect]
     Active Substance: NIRAPARIB
     Dosage: 100 MG, QD
     Dates: start: 20230116
  7. PEPCID [Concomitant]
     Active Substance: FAMOTIDINE
     Indication: Product used for unknown indication
     Dosage: 40 MG
  8. CRESTOR [Concomitant]
     Active Substance: ROSUVASTATIN CALCIUM
     Indication: Product used for unknown indication
     Dosage: 20 MG, QD
  9. METOPROLOL TARTRATE [Concomitant]
     Active Substance: METOPROLOL TARTRATE
     Indication: Product used for unknown indication
     Dosage: 25 MG
  10. FAMOTIDINE [Concomitant]
     Active Substance: FAMOTIDINE
     Indication: Product used for unknown indication
     Dosage: 20 MG, BID
  11. METOPROLOL SUCCINATE [Concomitant]
     Active Substance: METOPROLOL SUCCINATE
     Indication: Product used for unknown indication
     Dosage: 25 MG, QD
  12. METOPROLOL SUCCINATE [Concomitant]
     Active Substance: METOPROLOL SUCCINATE
     Dosage: 50 MG, QD
  13. LATANOPROST EYE DROP [Concomitant]
     Indication: Product used for unknown indication
     Dosage: UNK UNK, QD

REACTIONS (17)
  - Renal impairment [Recovering/Resolving]
  - Nephrolithiasis [Not Recovered/Not Resolved]
  - Hypertension [Recovering/Resolving]
  - Renal function test abnormal [Recovering/Resolving]
  - Blood pressure fluctuation [Recovering/Resolving]
  - Mass [Unknown]
  - Middle insomnia [Recovering/Resolving]
  - Malaise [Not Recovered/Not Resolved]
  - Blood test abnormal [Not Recovered/Not Resolved]
  - Dehydration [Recovered/Resolved]
  - Platelet count decreased [Recovered/Resolved]
  - Red blood cell count decreased [Recovered/Resolved]
  - Ill-defined disorder [Unknown]
  - Renal disorder [Unknown]
  - Constipation [Recovered/Resolved]
  - Blood pressure increased [Unknown]
  - Inappropriate schedule of product administration [Unknown]
